FAERS Safety Report 7746739-1 (Version None)
Quarter: 2011Q3

REPORT INFORMATION
  Report Type: 
  Country: None (occurrence: None)
  Receive Date: 20110908
  Receipt Date: 20110824
  Transmission Date: 20111222
  Serious: Yes (Other)
  Sender: FDA-Public Use
  Company Number: AUR-APL-2011-04793

PATIENT
  Age: 18 Year
  Sex: Female

DRUGS (1)
  1. LAMOTRIGINE [Suspect]
     Indication: CONVULSION
     Dosage: 300 MG (150 MG,2 IN 1 D)
     Dates: start: 20070201

REACTIONS (8)
  - MOUTH ULCERATION [None]
  - ANTINUCLEAR ANTIBODY POSITIVE [None]
  - FATIGUE [None]
  - RASH [None]
  - SYNOVITIS [None]
  - SYSTEMIC LUPUS ERYTHEMATOSUS [None]
  - ARTHRALGIA [None]
  - PROTEINURIA [None]
